FAERS Safety Report 25660386 (Version 1)
Quarter: 2025Q3

REPORT INFORMATION
  Report Type: Spontaneous
  Country: CH (occurrence: CH)
  Receive Date: 20250808
  Receipt Date: 20250808
  Transmission Date: 20251021
  Serious: No
  Sender: BLUEPRINT MEDICINES
  Company Number: CH-Blueprint Medicines Corporation-2025-AER-01738

PATIENT
  Sex: Female

DRUGS (2)
  1. AVAPRITINIB [Suspect]
     Active Substance: AVAPRITINIB
     Indication: Product used for unknown indication
     Route: 065
  2. AVAPRITINIB [Suspect]
     Active Substance: AVAPRITINIB
     Route: 065

REACTIONS (1)
  - Off label use [Unknown]
